FAERS Safety Report 6662276-X (Version None)
Quarter: 2010Q1

REPORT INFORMATION
  Report Type: 
  Country: None (occurrence: None)
  Receive Date: 20100322
  Receipt Date: 20100302
  Transmission Date: 20100710
  Serious: No
  Sender: FDA-Public Use
  Company Number: 2010-00303

PATIENT
  Age: 43 Year
  Sex: Male
  Weight: 83.9154 kg

DRUGS (4)
  1. ZICAM INTENSE SINUS RELIEF [Suspect]
     Dosage: 2 DOSES - 1 DAY, 2 DOSES
     Dates: start: 20100227, end: 20100228
  2. VITAMIN A [Concomitant]
  3. VITAMIN C [Concomitant]
  4. VITAMIN E [Concomitant]

REACTIONS (2)
  - AGEUSIA [None]
  - ANOSMIA [None]
